FAERS Safety Report 8062984-2 (Version None)
Quarter: 2012Q1

REPORT INFORMATION
  Report Type: 
  Country: None (occurrence: None)
  Receive Date: 20120123
  Receipt Date: 20120112
  Transmission Date: 20120608
  Serious: Yes (Hospitalization, Other)
  Sender: FDA-Public Use
  Company Number: US-BAYER-2011-087351

PATIENT
  Age: 27 Year
  Sex: Female

DRUGS (17)
  1. ALLERGY SHOTS [Concomitant]
  2. ZYRTEC [Concomitant]
     Dosage: 10 MG, UNK
     Route: 048
     Dates: start: 20060723
  3. DROSPIRENONE AND ETHINYL ESTRADIOL [Suspect]
     Dosage: UNK
     Dates: start: 20050101, end: 20090101
  4. FEXOFENADINE [Concomitant]
     Dosage: 180 MG, UNK
     Route: 048
     Dates: start: 20060914
  5. MYLANTA [Concomitant]
     Indication: ABDOMINAL PAIN
  6. SOLU-MEDROL [Concomitant]
     Dosage: 125 MG, UNK
     Route: 042
     Dates: start: 20060830
  7. YASMIN [Suspect]
     Dosage: UNK
     Dates: start: 20050101, end: 20090101
  8. ALBUTEROL [Concomitant]
     Dosage: UNK UNK, PRN
  9. NASONEX [Concomitant]
     Dosage: UNK UNK, BID
  10. METHYLPREDNISOLONE [Concomitant]
     Dosage: 4 MG, UNK
     Route: 048
     Dates: start: 20060723
  11. BENADRYL [Concomitant]
     Dosage: 50 MG, UNK
     Route: 042
     Dates: start: 20060830
  12. PHENERGAN [Concomitant]
     Dosage: 12.5 MG, UNK
     Route: 042
     Dates: start: 20060830
  13. PREDNISONE [Concomitant]
     Dosage: 20 MG, UNK
     Route: 048
     Dates: start: 20060906
  14. EPIPEN [Concomitant]
     Dosage: 0.3 MG, UNK
     Dates: start: 20060914
  15. ASTELIN [Concomitant]
  16. DECADRON [Concomitant]
     Dosage: 10 MG, UNK
     Route: 030
     Dates: start: 20060723
  17. SODIUM CHLORIDE [Concomitant]
     Dosage: 500 ML, UNK
     Route: 042
     Dates: start: 20060830

REACTIONS (3)
  - PAIN [None]
  - INJURY [None]
  - GALLBLADDER DISORDER [None]
